FAERS Safety Report 5000864-7 (Version None)
Quarter: 2006Q2

REPORT INFORMATION
  Report Type: 
  Country: None (occurrence: None)
  Receive Date: 20060512
  Receipt Date: 20050819
  Transmission Date: 20061013
  Serious: Yes (Hospitalization, Disabling)
  Sender: FDA-Public Use
  Company Number: US-MERCK-0508USA03504

PATIENT
  Age: 60 Year
  Sex: Male
  Weight: 95 kg

DRUGS (5)
  1. VIOXX [Suspect]
     Indication: OSTEOARTHRITIS
     Route: 048
     Dates: start: 20040120, end: 20040801
  2. ASPIRIN [Concomitant]
     Route: 065
     Dates: start: 20000101, end: 20040101
  3. PROSCAR [Concomitant]
     Route: 065
  4. FLONASE [Concomitant]
     Route: 065
  5. SAW PALMETTO [Concomitant]
     Route: 065
     Dates: start: 19900101, end: 20040101

REACTIONS (8)
  - ACUTE MYOCARDIAL INFARCTION [None]
  - BENIGN NEOPLASM OF SKIN [None]
  - HAEMATOCRIT DECREASED [None]
  - HAND FRACTURE [None]
  - PHLEBITIS [None]
  - PLEURAL EFFUSION [None]
  - PROSTATE CANCER [None]
  - SINUS TACHYCARDIA [None]
